FAERS Safety Report 5815206-4 (Version None)
Quarter: 2008Q3

REPORT INFORMATION
  Report Type: 
  Country: None (occurrence: None)
  Receive Date: 20080718
  Receipt Date: 20080710
  Transmission Date: 20090109
  Serious: Yes (Hospitalization)
  Sender: FDA-Public Use
  Company Number: US-ABBOTT-08P-163-0460441-00

PATIENT
  Sex: Female
  Weight: 52.21 kg

DRUGS (3)
  1. HUMIRA [Suspect]
     Indication: CROHN'S DISEASE
     Dosage: LOADING DOSE
     Route: 058
     Dates: end: 20071101
  2. HUMIRA [Suspect]
     Route: 058
     Dates: start: 20080101
  3. ^TOO MANY TO LIST^ [Concomitant]

REACTIONS (7)
  - CORONARY ARTERY DISEASE [None]
  - GALLBLADDER DISORDER [None]
  - INFECTION [None]
  - METHICILLIN-RESISTANT STAPHYLOCOCCAL AUREUS TEST POSITIVE [None]
  - PNEUMONIA [None]
  - URINARY TRACT INFECTION [None]
  - WEIGHT DECREASED [None]
